FAERS Safety Report 9676174 (Version 1)
Quarter: 2013Q4

REPORT INFORMATION
  Report Type: Spontaneous
  Country: US (occurrence: US)
  Receive Date: 20131107
  Receipt Date: 20131107
  Transmission Date: 20140711
  Serious: Yes (Other)
  Sender: FDA-Public Use
  Company Number: US-PFIZER INC-2013316490

PATIENT
  Age: 50 Year
  Sex: Female
  Weight: 65.7 kg

DRUGS (5)
  1. EFFEXOR XR [Suspect]
     Indication: HOT FLUSH
     Dosage: 75 MG, 1X/DAY
  2. EFFEXOR XR [Suspect]
     Indication: MOOD SWINGS
     Dosage: 75 MG, ALTERNATE DAY
  3. EFFEXOR XR [Suspect]
     Indication: STRESS
  4. EFFEXOR XR [Suspect]
     Indication: DEPRESSION
  5. NEXIUM [Concomitant]
     Indication: HYPERCHLORHYDRIA
     Dosage: 40 MG, 1X/DAY

REACTIONS (9)
  - Intentional drug misuse [Unknown]
  - Homicidal ideation [Not Recovered/Not Resolved]
  - Drug withdrawal syndrome [Not Recovered/Not Resolved]
  - Agitation [Not Recovered/Not Resolved]
  - Irritability [Not Recovered/Not Resolved]
  - Tremor [Not Recovered/Not Resolved]
  - Feeling abnormal [Not Recovered/Not Resolved]
  - Headache [Not Recovered/Not Resolved]
  - Off label use [Unknown]
